FAERS Safety Report 4968124-8 (Version None)
Quarter: 2006Q1

REPORT INFORMATION
  Report Type: 
  Country: None (occurrence: None)
  Receive Date: 20060201
  Receipt Date: 20051228
  Transmission Date: 20060701
  Serious: No
  Sender: FDA-Public Use
  Company Number: 2006PV006448

PATIENT
  Age: 73 Year
  Sex: Female
  Weight: 99.7913 kg

DRUGS (9)
  1. BYETTA [Suspect]
     Indication: DIABETES MELLITUS NON-INSULIN-DEPENDENT
     Dosage: 5 MCG;BID;SC
     Route: 058
     Dates: start: 20051111, end: 20051101
  2. DARVOCET [Concomitant]
  3. PROZAC [Concomitant]
  4. GLUCOTROL XL [Concomitant]
  5. LEVOXYL [Concomitant]
  6. TAMOXIFEN CITRATE [Concomitant]
  7. AVANDIA [Concomitant]
  8. PREVACID [Concomitant]
  9. ENBREL [Concomitant]

REACTIONS (1)
  - DYSPNOEA [None]
